FAERS Safety Report 12691931 (Version 1)
Quarter: 2016Q3

REPORT INFORMATION
  Report Type: Report from Study
  Country: NL (occurrence: NL)
  Receive Date: 20160827
  Receipt Date: 20160827
  Transmission Date: 20161109
  Serious: Yes (Hospitalization)
  Sender: FDA-Public Use
  Company Number: NL-AMGEN-NLDSL2016111024

PATIENT
  Age: 68 Year
  Sex: Female

DRUGS (1)
  1. ARANESP [Suspect]
     Active Substance: DARBEPOETIN ALFA
     Indication: PRODUCT USED FOR UNKNOWN INDICATION
     Dosage: 1000 MUG,
     Route: 058
     Dates: start: 20160101

REACTIONS (1)
  - Haemoglobin decreased [Unknown]

NARRATIVE: CASE EVENT DATE: 20160805
